FAERS Safety Report 6031942-1 (Version None)
Quarter: 2009Q1

REPORT INFORMATION
  Report Type: 
  Country: None (occurrence: None)
  Receive Date: 20090107
  Receipt Date: 20081223
  Transmission Date: 20090719
  Serious: Yes (Other)
  Sender: FDA-Public Use
  Company Number: 8039948

PATIENT
  Age: 33 Year
  Sex: Male
  Weight: 96 kg

DRUGS (2)
  1. KEPPRA [Suspect]
     Indication: PARTIAL SEIZURES
     Dosage: 500 MG 2/D PO
     Route: 048
     Dates: start: 20041209
  2. LYRICA [Concomitant]

REACTIONS (3)
  - BLOOD TESTOSTERONE DECREASED [None]
  - IRRITABILITY [None]
  - SPERMATOZOA PROGRESSIVE MOTILITY DECREASED [None]
